FAERS Safety Report 8819910 (Version 2)
Quarter: 2012Q4

REPORT INFORMATION
  Report Type: 
  Country: US (occurrence: US)
  Receive Date: 20121001
  Receipt Date: 20121010
  Transmission Date: 20130627
  Serious: No
  Sender: FDA-Public Use
  Company Number: US-VERTEX PHARMACEUTICAL INC.-2012-021521

PATIENT
  Age: 58 None
  Sex: Female
  Weight: 93 kg

DRUGS (5)
  1. INCIVEK [Suspect]
     Indication: HEPATITIS C
     Dosage: 750 mg, tid
     Route: 048
     Dates: start: 20120828
  2. PEGASYS [Suspect]
     Indication: HEPATITIS C
     Dosage: 180 ?g, UNK
     Route: 058
     Dates: start: 20120828
  3. RIBAVIRIN [Suspect]
     Indication: HEPATITIS C
     Dosage: 3 tabs AM, 2 tabs PM
     Route: 048
     Dates: start: 20120828
  4. RIBAVIRIN [Suspect]
     Dosage: 3 tabs twice qd
     Route: 048
     Dates: start: 20120911
  5. RIBAVIRIN [Suspect]
     Dosage: 400 mg, bid
     Route: 048
     Dates: start: 20120925

REACTIONS (7)
  - Influenza like illness [Not Recovered/Not Resolved]
  - Lacrimation increased [Not Recovered/Not Resolved]
  - Pain [Not Recovered/Not Resolved]
  - Rhinorrhoea [Not Recovered/Not Resolved]
  - Dry throat [Not Recovered/Not Resolved]
  - Fatigue [Not Recovered/Not Resolved]
  - Anaemia [Not Recovered/Not Resolved]
